FAERS Safety Report 9305650 (Version 1)
Quarter: 2013Q2

REPORT INFORMATION
  Report Type: Spontaneous
  Country: BR (occurrence: BR)
  Receive Date: 20130523
  Receipt Date: 20130523
  Transmission Date: 20140414
  Serious: Yes (Other)
  Sender: FDA-Public Use
  Company Number: BR-PFIZER INC-2013153686

PATIENT
  Age: 82 Year
  Sex: Female
  Weight: 39 kg

DRUGS (1)
  1. AROMASIN [Suspect]
     Indication: BREAST CANCER
     Dosage: 25 MG, 1X/DAY
     Dates: start: 2003, end: 2011

REACTIONS (5)
  - Immunodeficiency [Unknown]
  - Bone disorder [Unknown]
  - Liver disorder [Unknown]
  - Disease progression [Unknown]
  - Breast cancer [Unknown]
